FAERS Safety Report 8270632-1 (Version None)
Quarter: 2012Q1

REPORT INFORMATION
  Report Type: 
  Country: None (occurrence: None)
  Receive Date: 20120327
  Receipt Date: 20100118
  Transmission Date: 20120608
  Serious: Yes (Hospitalization)
  Sender: FDA-Public Use
  Company Number: PHEH2010US00986

PATIENT
  Age: 82 Year
  Sex: Female

DRUGS (8)
  1. ZETIA [Concomitant]
  2. GLEEVEC [Suspect]
     Dosage: 100 MG, BID
     Dates: start: 20060101
  3. LIPITOR [Concomitant]
  4. LEVOTHYROXINE SODIUM [Concomitant]
  5. AMLODIPINE [Concomitant]
  6. LOTREL [Concomitant]
  7. ASPIRIN [Concomitant]
  8. WARFARIN SODIUM [Suspect]
     Indication: HEART RATE IRREGULAR
     Dosage: UNK
     Dates: end: 20080101

REACTIONS (4)
  - DRUG INTERACTION [None]
  - COAGULATION TEST ABNORMAL [None]
  - HEART RATE IRREGULAR [None]
  - BLOOD VISCOSITY INCREASED [None]
